FAERS Safety Report 13288313 (Version 2)
Quarter: 2017Q3

REPORT INFORMATION
  Report Type: Report from Study
  Country: IN (occurrence: IN)
  Receive Date: 20170302
  Receipt Date: 20170926
  Transmission Date: 20171127
  Serious: Yes (Hospitalization, Other)
  Sender: FDA-Public Use
  Company Number: IN-INCYTE CORPORATION-2017IN001456

PATIENT

DRUGS (2)
  1. JAKAVI [Suspect]
     Active Substance: RUXOLITINIB
     Indication: POLYCYTHAEMIA VERA
  2. JAKAVI [Suspect]
     Active Substance: RUXOLITINIB
     Indication: POLYCYTHAEMIA VERA
     Dosage: 10 MG, BID
     Route: 048
     Dates: start: 20160319

REACTIONS (6)
  - Polycythaemia [Recovered/Resolved]
  - Hyponatraemia [Recovering/Resolving]
  - Joint dislocation [Recovered/Resolved]
  - Pruritus [Recovering/Resolving]
  - Fall [Unknown]
  - Sensory disturbance [Recovering/Resolving]

NARRATIVE: CASE EVENT DATE: 201602
